FAERS Safety Report 7593399-9 (Version None)
Quarter: 2011Q3

REPORT INFORMATION
  Report Type: 
  Country: None (occurrence: None)
  Receive Date: 20110706
  Receipt Date: 20110630
  Transmission Date: 20111222
  Serious: Yes (Hospitalization, Disabling, Other)
  Sender: FDA-Public Use
  Company Number: US-MERCK-0808USA00324

PATIENT
  Age: 45 Year
  Sex: Female
  Weight: 64 kg

DRUGS (11)
  1. FOSAMAX [Suspect]
     Indication: OSTEOPOROSIS
     Route: 048
     Dates: start: 19980801, end: 20051101
  2. ULTRAM [Concomitant]
     Indication: PAIN
     Route: 065
     Dates: start: 19850101
  3. [THERAPY UNSPECIFIED] [Concomitant]
     Indication: BLOOD CHOLESTEROL INCREASED
     Route: 065
     Dates: start: 19970603
  4. FOSAMAX [Suspect]
     Route: 048
     Dates: start: 19970118, end: 20051101
  5. CORTICOSTEROIDS (UNSPECIFIED) [Concomitant]
     Route: 065
     Dates: start: 19850101, end: 20060201
  6. SYNTHROID [Concomitant]
     Indication: HYPERTHYROIDISM
     Route: 065
     Dates: start: 19970509
  7. PAXIL [Concomitant]
     Indication: ANALGESIC THERAPY
     Route: 065
     Dates: start: 19970118
  8. FUROSEMIDE [Concomitant]
     Indication: FLUID RETENTION
     Route: 065
     Dates: start: 19980509
  9. VICODIN [Concomitant]
     Indication: PAIN
     Route: 065
     Dates: start: 19850101
  10. FLEXERIL [Concomitant]
     Indication: PAIN
     Route: 065
     Dates: start: 19850101
  11. PAXIL [Concomitant]
     Indication: ANXIETY
     Route: 065
     Dates: start: 19970118

REACTIONS (67)
  - HYPOTHYROIDISM [None]
  - ROAD TRAFFIC ACCIDENT [None]
  - LYMPHADENOPATHY [None]
  - MALAISE [None]
  - OEDEMA PERIPHERAL [None]
  - GASTROINTESTINAL INFECTION [None]
  - DYSPHAGIA [None]
  - BREAST INFLAMMATION [None]
  - BACK PAIN [None]
  - OSTEONECROSIS OF JAW [None]
  - ADVERSE DRUG REACTION [None]
  - SPINAL OSTEOARTHRITIS [None]
  - LYMPH NODES SCAN ABNORMAL [None]
  - HIATUS HERNIA [None]
  - DRUG HYPERSENSITIVITY [None]
  - SALIVARY GLAND DISORDER [None]
  - GOITRE [None]
  - ABDOMINAL PAIN [None]
  - DENTAL FISTULA [None]
  - ARTHRALGIA [None]
  - TOOTHACHE [None]
  - OESOPHAGITIS ULCERATIVE [None]
  - EAR DISORDER [None]
  - DYSLIPIDAEMIA [None]
  - FIBROCYSTIC BREAST DISEASE [None]
  - ARTHROPATHY [None]
  - BONE LOSS [None]
  - ALVEOLAR OSTEITIS [None]
  - CHEST PAIN [None]
  - MYALGIA [None]
  - MOOD SWINGS [None]
  - ACROCHORDON [None]
  - PHARYNGEAL ERYTHEMA [None]
  - NECK PAIN [None]
  - OSTEOPOROSIS [None]
  - SPONDYLITIS [None]
  - DEPRESSION [None]
  - COUGH [None]
  - MELANOCYTIC NAEVUS [None]
  - FUNGAL INFECTION [None]
  - CONSTIPATION [None]
  - MOUTH CYST [None]
  - VOMITING [None]
  - TOOTH ABSCESS [None]
  - GINGIVAL DISORDER [None]
  - BONE DISORDER [None]
  - ARTERIOSCLEROSIS CORONARY ARTERY [None]
  - ARTHRITIS [None]
  - CROHN'S DISEASE [None]
  - SQUAMOUS CELL CARCINOMA OF SKIN [None]
  - IRRITABLE BOWEL SYNDROME [None]
  - SUBCUTANEOUS ABSCESS [None]
  - RESPIRATORY TRACT CONGESTION [None]
  - TONGUE DISORDER [None]
  - ABDOMINAL DISCOMFORT [None]
  - ADVERSE EVENT [None]
  - HYPERTENSION [None]
  - SCOLIOSIS [None]
  - BREAST HYPERPLASIA [None]
  - TOOTH DEPOSIT [None]
  - NECROSIS [None]
  - CHEST DISCOMFORT [None]
  - THYROID CYST [None]
  - SIALOADENITIS [None]
  - OVERGROWTH BACTERIAL [None]
  - NAUSEA [None]
  - GASTROOESOPHAGEAL REFLUX DISEASE [None]
